FAERS Safety Report 16668375 (Version 1)
Quarter: 2019Q3

REPORT INFORMATION
  Report Type: Spontaneous
  Country: US (occurrence: US)
  Receive Date: 20190803
  Receipt Date: 20190803
  Transmission Date: 20191004
  Serious: Yes (Death, Hospitalization)
  Sender: FDA-Public Use
  Company Number: None

PATIENT
  Age: 74 Year
  Sex: Male
  Weight: 98.1 kg

DRUGS (1)
  1. ELIQUIS [Suspect]
     Active Substance: APIXABAN
     Indication: ATRIAL FIBRILLATION
     Dates: start: 20180413, end: 20180813

REACTIONS (4)
  - Haemorrhagic stroke [None]
  - Skin haemorrhage [None]
  - Peripheral swelling [None]
  - Sepsis [None]

NARRATIVE: CASE EVENT DATE: 20180823
